FAERS Safety Report 10902057 (Version 2)
Quarter: 2015Q3

REPORT INFORMATION
  Report Type: Spontaneous
  Country: DE (occurrence: DE)
  Receive Date: 20150310
  Receipt Date: 20150707
  Transmission Date: 20151125
  Serious: Yes (Disabling, Other)
  Sender: FDA-Public Use
  Company Number: DE-MUNDIPHARMA DS AND PHARMACOVIGILANCE-DEU-2015-0016406

PATIENT
  Age: 70 Year
  Sex: Male

DRUGS (3)
  1. CLONIDIN [Interacting]
     Active Substance: CLONIDINE
     Indication: PRODUCT USED FOR UNKNOWN INDICATION
     Dosage: 67.07 MCG, DAILY
     Route: 037
     Dates: start: 201409
  2. MSI MUNDIPHARMA [Suspect]
     Active Substance: MORPHINE SULFATE
     Indication: PRODUCT USED FOR UNKNOWN INDICATION
     Dosage: 4 MG, DAILY
     Route: 058
  3. MSI MUNDIPHARMA [Interacting]
     Active Substance: MORPHINE SULFATE
     Dosage: UNK
     Route: 037
     Dates: start: 1998

REACTIONS (6)
  - Gynaecomastia [Unknown]
  - Drug ineffective [Unknown]
  - Drug interaction [Unknown]
  - Dyspnoea [Not Recovered/Not Resolved]
  - Adverse drug reaction [Unknown]
  - Dental caries [Unknown]

NARRATIVE: CASE EVENT DATE: 2014
